FAERS Safety Report 5995070-3 (Version None)
Quarter: 2008Q4

REPORT INFORMATION
  Report Type: 
  Country: None (occurrence: None)
  Receive Date: 20081212
  Receipt Date: 20081203
  Transmission Date: 20090506
  Serious: Yes (Hospitalization)
  Sender: FDA-Public Use
  Company Number: FR-SANOFI-SYNTHELABO-A02200803630

PATIENT
  Sex: Female

DRUGS (7)
  1. DURAGESIC-100 [Suspect]
     Indication: PAIN
     Dosage: 25 MCG/HOUR EVRY 3 DAYS
     Route: 062
     Dates: start: 20080911, end: 20081011
  2. NOROXIN [Suspect]
     Indication: URINARY TRACT INFECTION
     Route: 048
     Dates: start: 20080922, end: 20080924
  3. BACTRIM [Suspect]
     Indication: DRUG USE FOR UNKNOWN INDICATION
     Route: 048
     Dates: start: 20080924, end: 20081002
  4. CORDARONE [Suspect]
     Indication: ARRHYTHMIA
     Route: 048
  5. XATRAL [Suspect]
     Indication: URINARY RETENTION
     Route: 048
     Dates: start: 20080922
  6. DAFALGAN [Suspect]
     Indication: PAIN
     Route: 048
     Dates: start: 20080909
  7. MICROPAKINE [Suspect]
     Indication: EPILEPSY
     Route: 048
     Dates: start: 20080915

REACTIONS (2)
  - NEUTROPENIA [None]
  - PYREXIA [None]
